FAERS Safety Report 7009192-1 (Version None)
Quarter: 2010Q3

REPORT INFORMATION
  Report Type: 
  Country: None (occurrence: None)
  Receive Date: 20100923
  Receipt Date: 20100917
  Transmission Date: 20110219
  Serious: Yes (Other)
  Sender: FDA-Public Use
  Company Number: US-B.I. PHARMACEUTICALS,INC./RIDGEFIELD-2010-BP-06994BP

PATIENT
  Age: 56 Year
  Sex: Female

DRUGS (13)
  1. MICARDIS [Suspect]
     Indication: HYPERTENSION
     Dosage: 40 MG
     Route: 048
     Dates: start: 20010101
  2. TOPROL-XL [Concomitant]
     Indication: ATRIAL FIBRILLATION
     Dosage: 50 MG
  3. XALATAN [Concomitant]
     Indication: GLAUCOMA
     Route: 031
  4. ULTRAM [Concomitant]
     Indication: ARTHRITIS
     Dosage: 200 MG
  5. NIFEDIPINE [Concomitant]
     Indication: ANORECTAL DISORDER
  6. AZELEX [Concomitant]
     Indication: ROSACEA
     Route: 061
  7. XANAX [Concomitant]
     Indication: ANXIETY
  8. ASTELIN [Concomitant]
     Route: 045
  9. LOPROX [Concomitant]
     Indication: TINEA PEDIS
     Route: 061
  10. LOPROX [Concomitant]
     Indication: FUNGAL INFECTION
  11. AROMASIN [Concomitant]
     Indication: CANCER HORMONAL THERAPY
     Dosage: 25 MG
  12. CALTRATE [Concomitant]
  13. EUCERIN [Concomitant]
     Route: 061

REACTIONS (1)
  - BREAST CANCER [None]
